FAERS Safety Report 6811452-1 (Version None)
Quarter: 2010Q2

REPORT INFORMATION
  Report Type: 
  Country: None (occurrence: None)
  Receive Date: 20100629
  Receipt Date: 20100629
  Transmission Date: 20101027
  Serious: Yes (Other)
  Sender: FDA-Public Use
  Company Number: None

PATIENT
  Age: 5 Day
  Sex: Male
  Weight: 1.74 kg

DRUGS (2)
  1. FER-IRON DROPS 15MG/0.6 ML RUGBY [Suspect]
     Indication: ANAEMIA
     Dosage: 7.5MG/0.3ML DAILY PO
     Route: 048
     Dates: start: 20100626, end: 20100628
  2. FER-IRON DROPS 15MG/ML RUGBY [Suspect]
     Dosage: 5MG/0.3ML DAILY PO
     Route: 048
     Dates: start: 20100624, end: 20100625

REACTIONS (4)
  - INCORRECT DOSE ADMINISTERED [None]
  - MEDICATION ERROR [None]
  - PRODUCT LABEL CONFUSION [None]
  - PRODUCT OUTER PACKAGING ISSUE [None]
